FAERS Safety Report 22679046 (Version 2)
Quarter: 2024Q2

REPORT INFORMATION
  Report Type: Spontaneous
  Country: US (occurrence: None)
  Receive Date: 20230706
  Receipt Date: 20240610
  Transmission Date: 20240716
  Serious: No
  Sender: FDA-Public Use
  Company Number: US-ROCHE-3248129

PATIENT
  Age: 37 Year
  Sex: Female

DRUGS (6)
  1. PERJETA [Suspect]
     Active Substance: PERTUZUMAB
     Indication: Breast cancer metastatic
     Route: 042
     Dates: start: 202002, end: 202008
  2. HERCEPTIN [Suspect]
     Active Substance: TRASTUZUMAB
     Indication: Breast cancer metastatic
     Route: 041
     Dates: start: 202002, end: 202008
  3. TAXOL [Concomitant]
     Active Substance: PACLITAXEL
     Indication: Breast cancer stage IV
     Dosage: 6 ROUND
     Dates: start: 202002, end: 202008
  4. CARBOPLATIN [Concomitant]
     Active Substance: CARBOPLATIN
     Indication: Breast cancer stage IV
     Dates: start: 202002, end: 202008
  5. LETROZOLE [Concomitant]
     Active Substance: LETROZOLE
     Indication: Breast cancer stage IV
     Route: 048
     Dates: start: 202008
  6. XGEVA [Concomitant]
     Active Substance: DENOSUMAB

REACTIONS (10)
  - Rash [Recovered/Resolved]
  - Alopecia [Recovered/Resolved]
  - Pain [Recovered/Resolved]
  - Thirst [Not Recovered/Not Resolved]
  - Fatigue [Not Recovered/Not Resolved]
  - Nausea [Not Recovered/Not Resolved]
  - Acne cystic [Unknown]
  - Thermal burn [Unknown]
  - Stomatitis [Unknown]
  - Diarrhoea [Unknown]
